FAERS Safety Report 24430977 (Version 2)
Quarter: 2024Q4

REPORT INFORMATION
  Report Type: Spontaneous
  Country: US (occurrence: US)
  Receive Date: 20241014
  Receipt Date: 20241110
  Transmission Date: 20250114
  Serious: No
  Sender: SANOFI AVENTIS
  Company Number: US-SA-2024SA290565

PATIENT
  Age: 14 Year
  Sex: Male
  Weight: 49.161 kg

DRUGS (1)
  1. DUPIXENT [Suspect]
     Active Substance: DUPILUMAB
     Indication: Dermatitis atopic
     Dosage: 200 MG, QOW
     Route: 058

REACTIONS (6)
  - Dry skin [Unknown]
  - Epistaxis [Unknown]
  - Skin exfoliation [Unknown]
  - Pruritus [Unknown]
  - Injection site erythema [Unknown]
  - Rash [Unknown]
